FAERS Safety Report 4803850-2 (Version None)
Quarter: 2005Q3

REPORT INFORMATION
  Report Type: 
  Country: None (occurrence: None)
  Receive Date: 20050920
  Receipt Date: 20050524
  Transmission Date: 20060218
  Serious: No
  Sender: FDA-Public Use
  Company Number: US-YAMANOUCHI-YPA20050282

PATIENT
  Age: 90 Year
  Sex: Male
  Weight: 83.9154 kg

DRUGS (16)
  1. VESICARE [Suspect]
     Indication: HYPERTONIC BLADDER
     Dosage: 5 MG QD PO
     Route: 048
     Dates: start: 20050501
  2. ZOLOFT [Concomitant]
  3. HYTRIN [Concomitant]
  4. LUPRON [Concomitant]
  5. OMEPRAZOLE [Concomitant]
  6. M.V.I. [Concomitant]
  7. FISH OIL [Concomitant]
  8. OLIVE OIL [Concomitant]
  9. CQ10 [Concomitant]
  10. GARLIC [Concomitant]
  11. SELENIUM SULFIDE [Concomitant]
  12. LACTULOSE [Concomitant]
  13. KRYSOL [Concomitant]
  14. BIOTENE [Concomitant]
  15. GLUCOSAMINE [Concomitant]
  16. SANCTURA [Concomitant]

REACTIONS (1)
  - POLLAKIURIA [None]
